FAERS Safety Report 6566765-8 (Version None)
Quarter: 2010Q1

REPORT INFORMATION
  Report Type: 
  Country: None (occurrence: None)
  Receive Date: 20100202
  Receipt Date: 20100121
  Transmission Date: 20100710
  Serious: Yes (Hospitalization)
  Sender: FDA-Public Use
  Company Number: FR-PFIZER INC-2009307736

PATIENT
  Age: 47 Year
  Sex: Male
  Weight: 59 kg

DRUGS (1)
  1. SUNITINIB MALATE [Suspect]
     Indication: THYROID CANCER
     Dosage: 37.5 MG, 1X/DAY
     Dates: start: 20090707, end: 20091125

REACTIONS (1)
  - TRACHEAL FISTULA [None]
